FAERS Safety Report 10521824 (Version 3)
Quarter: 2014Q4

REPORT INFORMATION
  Report Type: Spontaneous
  Country: ES (occurrence: None)
  Receive Date: 20141014
  Receipt Date: 20141112
  Transmission Date: 20150528
  Serious: Yes (Other)
  Sender: FDA-Public Use
  Company Number: 2014ES010650

PATIENT
  Age: 8 Year
  Sex: Male
  Weight: 42 kg

DRUGS (4)
  1. ALOXI [Suspect]
     Active Substance: PALONOSETRON HYDROCHLORIDE
  2. IFOSFAMIDE. [Concomitant]
     Active Substance: IFOSFAMIDE
  3. ACTINOMYCIN D (DACTINOMYCIN) [Concomitant]
  4. VINCRISTINE [Concomitant]
     Active Substance: VINCRISTINE

REACTIONS (5)
  - Muscle twitching [None]
  - Off label use [None]
  - Extrapyramidal disorder [None]
  - Dystonia [None]
  - Neurotoxicity [None]
